FAERS Safety Report 14343818 (Version 1)
Quarter: 2017Q4

REPORT INFORMATION
  Report Type: Spontaneous
  Country: US (occurrence: US)
  Receive Date: 20171229
  Receipt Date: 20171229
  Transmission Date: 20180321
  Serious: No
  Sender: FDA-Public Use
  Company Number: None

PATIENT
  Age: 53 Year
  Sex: Female

DRUGS (1)
  1. IMATINIB 400MG SUN PHARMA [Suspect]
     Active Substance: IMATINIB
     Indication: GASTROINTESTINAL STROMAL TUMOUR
     Route: 048
     Dates: start: 20171009

REACTIONS (1)
  - Vomiting [None]

NARRATIVE: CASE EVENT DATE: 20171212
